FAERS Safety Report 4279443-5 (Version None)
Quarter: 2004Q1

REPORT INFORMATION
  Report Type: 
  Country: None (occurrence: None)
  Receive Date: 20040123
  Receipt Date: 20040113
  Transmission Date: 20041129
  Serious: No
  Sender: FDA-Public Use
  Company Number: CA-SHR-04-019714

PATIENT
  Sex: Female

DRUGS (3)
  1. CAMPATH [Suspect]
     Indication: DIABETES MELLITUS INSULIN-DEPENDENT
  2. CAMPATH [Suspect]
     Indication: PANCREAS ISLET CELL TRANSPLANT
  3. INFLIXIMAB (INFLIXIMAB) [Suspect]

REACTIONS (1)
  - OVARIAN CYST [None]
